FAERS Safety Report 17256664 (Version 1)
Quarter: 2020Q1

REPORT INFORMATION
  Report Type: Spontaneous
  Country: US (occurrence: US)
  Receive Date: 20200110
  Receipt Date: 20200110
  Transmission Date: 20200409
  Serious: No
  Sender: FDA-Public Use
  Company Number: US-JNJFOC-20200105606

PATIENT
  Sex: Female
  Weight: 46.76 kg

DRUGS (1)
  1. INVEGA SUSTENNA [Suspect]
     Active Substance: PALIPERIDONE PALMITATE
     Indication: POST CONCUSSION SYNDROME
     Route: 030
     Dates: start: 2019, end: 2019

REACTIONS (2)
  - Product use in unapproved indication [Unknown]
  - Off label use [Unknown]
